FAERS Safety Report 6553891-2 (Version None)
Quarter: 2010Q1

REPORT INFORMATION
  Report Type: 
  Country: None (occurrence: None)
  Receive Date: 20100127
  Receipt Date: 20100119
  Transmission Date: 20100710
  Serious: Yes (Hospitalization)
  Sender: FDA-Public Use
  Company Number: NO-TEVA-221427ISR

PATIENT
  Age: 57 Year
  Sex: Male

DRUGS (10)
  1. METFORMIN [Suspect]
     Indication: DIABETES MELLITUS
     Dosage: 0.5-1 GRAM
     Dates: start: 19990101
  2. LANSOPRAZOLE [Concomitant]
     Indication: DRUG USE FOR UNKNOWN INDICATION
  3. RAMIPRIL [Concomitant]
     Indication: DRUG USE FOR UNKNOWN INDICATION
  4. GLIPIZIDE [Concomitant]
     Indication: TYPE 2 DIABETES MELLITUS
  5. ISOSORBIDE MONONITRATE [Concomitant]
     Indication: DRUG USE FOR UNKNOWN INDICATION
  6. ACETYLSALICYLIC ACID [Concomitant]
     Indication: DRUG USE FOR UNKNOWN INDICATION
  7. CLOPIDOGREL [Concomitant]
     Indication: DRUG USE FOR UNKNOWN INDICATION
  8. METOPROLOL [Concomitant]
     Indication: DRUG USE FOR UNKNOWN INDICATION
  9. ATORVASTATIN CALCIUM [Concomitant]
     Indication: DRUG USE FOR UNKNOWN INDICATION
  10. GLIMEPIRIDE [Concomitant]
     Indication: DRUG USE FOR UNKNOWN INDICATION

REACTIONS (9)
  - DIARRHOEA [None]
  - HYPOCALCAEMIA [None]
  - HYPOKALAEMIA [None]
  - HYPOMAGNESAEMIA [None]
  - MALAISE [None]
  - MUSCLE SPASMS [None]
  - PAIN [None]
  - PARAESTHESIA [None]
  - PARAESTHESIA ORAL [None]
